FAERS Safety Report 21263702 (Version 1)
Quarter: 2022Q3

REPORT INFORMATION
  Report Type: Report from Study
  Country: CA (occurrence: CA)
  Receive Date: 20220829
  Receipt Date: 20220829
  Transmission Date: 20221027
  Serious: Yes (Hospitalization)
  Sender: FDA-Public Use
  Company Number: CA-JNJFOC-20220757047

PATIENT
  Age: 7 Decade
  Sex: Male
  Weight: 90 kg

DRUGS (3)
  1. REMICADE [Suspect]
     Active Substance: INFLIXIMAB
     Indication: Crohn^s disease
     Route: 042
     Dates: start: 20201124
  2. REMICADE [Suspect]
     Active Substance: INFLIXIMAB
     Route: 042
     Dates: end: 20220615
  3. MORPHINE [Suspect]
     Active Substance: MORPHINE
     Indication: Chest pain
     Route: 065
     Dates: start: 202207

REACTIONS (6)
  - Pneumonia [Not Recovered/Not Resolved]
  - Pleural effusion [Recovering/Resolving]
  - Weight decreased [Unknown]
  - Adverse drug reaction [Unknown]
  - COVID-19 [Recovered/Resolved]
  - Total lung capacity decreased [Not Recovered/Not Resolved]

NARRATIVE: CASE EVENT DATE: 20220101
